FAERS Safety Report 13284865 (Version 1)
Quarter: 2017Q1

REPORT INFORMATION
  Report Type: Spontaneous
  Country: US (occurrence: US)
  Receive Date: 20170301
  Receipt Date: 20170301
  Transmission Date: 20170428
  Serious: Yes (Disabling)
  Sender: FDA-Public Use
  Company Number: None

PATIENT
  Age: 65 Year
  Sex: Male
  Weight: 68.04 kg

DRUGS (7)
  1. JUBLIA [Suspect]
     Active Substance: EFINACONAZOLE
     Indication: ONYCHOMYCOSIS
     Dosage: 1/DAY TOPICAL
     Route: 061
     Dates: start: 20161128, end: 20161204
  2. LEVOTHYROXINE. [Concomitant]
     Active Substance: LEVOTHYROXINE
  3. NEFAZADONE [Concomitant]
  4. LIDODERM [Concomitant]
     Active Substance: LIDOCAINE
  5. ANDROGEL [Concomitant]
     Active Substance: TESTOSTERONE
  6. RANITIDINE. [Concomitant]
     Active Substance: RANITIDINE
  7. LYRICA [Concomitant]
     Active Substance: PREGABALIN

REACTIONS (5)
  - Nail infection [None]
  - Pain in extremity [None]
  - Skin discolouration [None]
  - Nail discolouration [None]
  - Skin exfoliation [None]

NARRATIVE: CASE EVENT DATE: 20161204
